FAERS Safety Report 4318279-3 (Version None)
Quarter: 2004Q1

REPORT INFORMATION
  Report Type: 
  Country: None (occurrence: None)
  Receive Date: 20040315
  Receipt Date: 20031113
  Transmission Date: 20041129
  Serious: No
  Sender: FDA-Public Use
  Company Number: 2003186682US

PATIENT
  Age: 73 Year
  Sex: Female

DRUGS (1)
  1. BEXTRA [Suspect]
     Indication: PAIN
     Dosage: 10, MG
     Dates: start: 20031101

REACTIONS (1)
  - VAGINAL BURNING SENSATION [None]
